FAERS Safety Report 14532130 (Version 1)
Quarter: 2018Q1

REPORT INFORMATION
  Report Type: Report from Study
  Country: AT (occurrence: AT)
  Receive Date: 20180214
  Receipt Date: 20180214
  Transmission Date: 20180509
  Serious: Yes (Other)
  Sender: FDA-Public Use
  Company Number: AT-TEVA-2018-AT-855416

PATIENT
  Age: 39 Year
  Sex: Male

DRUGS (3)
  1. TACROLIMUS. [Suspect]
     Active Substance: TACROLIMUS
     Indication: RENAL TRANSPLANT
     Dosage: UNK, ONCE DAILY
     Route: 065
     Dates: start: 20151222, end: 20151222
  2. MYCOPHENOLATE SODIUM [Concomitant]
     Active Substance: MYCOPHENOLATE SODIUM
     Indication: IMMUNOSUPPRESSION
     Dosage: 720 (UNKNOWN UNIT) , UNKNOWN FREQ.
     Route: 065
     Dates: start: 20161019, end: 20161222
  3. METHYLPREDNISOLONE. [Concomitant]
     Active Substance: METHYLPREDNISOLONE
     Indication: IMMUNOSUPPRESSION
     Dosage: 4 (UNKNOWN UNIT), UNKNOWN FREQ.
     Route: 065
     Dates: start: 20161121

REACTIONS (1)
  - Renal transplant failure [Recovered/Resolved]

NARRATIVE: CASE EVENT DATE: 20161223
